FAERS Safety Report 25709558 (Version 1)
Quarter: 2025Q3

REPORT INFORMATION
  Report Type: Report from Study
  Country: US (occurrence: US)
  Receive Date: 20250821
  Receipt Date: 20250821
  Transmission Date: 20251020
  Serious: No
  Sender: SUNOVION
  Company Number: US-SMPA-2025SPA010432

PATIENT
  Age: 78 Year
  Sex: Male

DRUGS (8)
  1. ORGOVYX [Suspect]
     Active Substance: RELUGOLIX
     Indication: Prostate cancer
     Route: 048
     Dates: start: 20250724, end: 20250724
  2. ORGOVYX [Suspect]
     Active Substance: RELUGOLIX
     Route: 048
  3. ATORVASTATIN [Concomitant]
     Active Substance: ATORVASTATIN
  4. BRILINTA [Concomitant]
     Active Substance: TICAGRELOR
  5. CARVEDILOL [Concomitant]
     Active Substance: CARVEDILOL
  6. DORZOLAMIDE\TIMOLOL [Concomitant]
     Active Substance: DORZOLAMIDE\TIMOLOL
  7. EZETIMIBE [Concomitant]
     Active Substance: EZETIMIBE
  8. LATANOPROST [Concomitant]
     Active Substance: LATANOPROST

REACTIONS (1)
  - Hot flush [Unknown]
